FAERS Safety Report 11915968 (Version 4)
Quarter: 2016Q1

REPORT INFORMATION
  Report Type: Report from Study
  Country: IL (occurrence: IL)
  Receive Date: 20160114
  Receipt Date: 20160204
  Transmission Date: 20160526
  Serious: Yes (Hospitalization)
  Sender: FDA-Public Use
  Company Number: PHHY2016IL003552

PATIENT
  Age: 53 Year
  Sex: Female

DRUGS (2)
  1. GADOLINIUM [Concomitant]
     Active Substance: GADOLINIUM
     Indication: PRODUCT USED FOR UNKNOWN INDICATION
     Route: 065
  2. GILENYA [Suspect]
     Active Substance: FINGOLIMOD HYDROCHLORIDE
     Indication: MULTIPLE SCLEROSIS
     Dosage: 0.5 MG, QD
     Route: 048
     Dates: start: 20121009, end: 20160114

REACTIONS (9)
  - Progressive multifocal leukoencephalopathy [Not Recovered/Not Resolved]
  - Aphasia [Unknown]
  - Multiple sclerosis relapse [Recovering/Resolving]
  - Hemiparesis [Not Recovered/Not Resolved]
  - Lymphocyte count decreased [Unknown]
  - Cognitive disorder [Unknown]
  - Suicidal ideation [Unknown]
  - Dysarthria [Recovering/Resolving]
  - Asthenia [Unknown]

NARRATIVE: CASE EVENT DATE: 20160117
